FAERS Safety Report 4502618-4 (Version None)
Quarter: 2004Q4

REPORT INFORMATION
  Report Type: 
  Country: None (occurrence: None)
  Receive Date: 20041110
  Receipt Date: 20041028
  Transmission Date: 20050328
  Serious: Yes (Hospitalization, Other)
  Sender: FDA-Public Use
  Company Number: HQWYE177129OCT04

PATIENT
  Age: 31 Year
  Sex: Male

DRUGS (5)
  1. ADVIL [Suspect]
     Indication: PYREXIA
     Dosage: 4 TABLETS DAILY ORAL
     Route: 048
     Dates: start: 20040829, end: 20040901
  2. CIPROFLOXACIN HCL [Suspect]
     Dates: start: 20040901
  3. ACETAMINOPHEN [Suspect]
     Dates: start: 20040828, end: 20040901
  4. ROCEPHIN [Concomitant]
  5. TOTAPEN (AMPICILLIN TRIHYDRATE) [Concomitant]

REACTIONS (4)
  - ANGINA PECTORIS [None]
  - DRUG TOXICITY [None]
  - NEUTROPENIA [None]
  - VIRAL INFECTION [None]
